FAERS Safety Report 7560303-9 (Version None)
Quarter: 2011Q2

REPORT INFORMATION
  Report Type: 
  Country: None (occurrence: None)
  Receive Date: 20110621
  Receipt Date: 20110615
  Transmission Date: 20111010
  Serious: Yes (Other)
  Sender: FDA-Public Use
  Company Number: US-TEVA-283533USA

PATIENT
  Sex: Female

DRUGS (1)
  1. COPAXONE [Suspect]
     Indication: RELAPSING-REMITTING MULTIPLE SCLEROSIS
     Route: 058
     Dates: start: 19980101

REACTIONS (5)
  - INJECTION SITE REACTION [None]
  - NECROTISING FASCIITIS [None]
  - SKIN LESION [None]
  - INJECTION SITE NECROSIS [None]
  - ERYTHEMA [None]
